FAERS Safety Report 26150284 (Version 1)
Quarter: 2025Q4

REPORT INFORMATION
  Report Type: Spontaneous
  Country: US (occurrence: None)
  Receive Date: 20251210
  Receipt Date: 20251210
  Transmission Date: 20260117
  Serious: Yes (Death, Life-Threatening, Hospitalization, Disabling)
  Sender: FDA-CTU
  Company Number: None

PATIENT
  Age: 65 Year
  Sex: Male

DRUGS (2)
  1. OZEMPIC [Suspect]
     Active Substance: SEMAGLUTIDE
     Indication: Diabetes mellitus inadequate control
     Dosage: OTHER FREQUENCY : WEEKLY INJECTION;?OTHER ROUTE : INJECTION;
     Route: 050
     Dates: start: 20250201, end: 20251114
  2. OZEMPIC [Suspect]
     Active Substance: SEMAGLUTIDE
     Indication: Weight control

REACTIONS (12)
  - Nausea [None]
  - Vomiting [None]
  - Diarrhoea [None]
  - Gastrointestinal necrosis [None]
  - Gastrointestinal necrosis [None]
  - Abdominal adhesions [None]
  - Renal disorder [None]
  - Multiple organ dysfunction syndrome [None]
  - Hepatic failure [None]
  - Renal failure [None]
  - Gallbladder disorder [None]
  - Cardiac disorder [None]

NARRATIVE: CASE EVENT DATE: 20251121
